FAERS Safety Report 4837828-X (Version None)
Quarter: 2005Q4

REPORT INFORMATION
  Report Type: 
  Country: None (occurrence: None)
  Receive Date: 20051128
  Receipt Date: 20051117
  Transmission Date: 20060501
  Serious: Yes (Hospitalization, Disabling)
  Sender: FDA-Public Use
  Company Number: US-MERCK-0511USA03245

PATIENT
  Sex: Female
  Weight: 66 kg

DRUGS (3)
  1. VIOXX [Suspect]
     Indication: FOOT OPERATION
     Route: 048
     Dates: start: 20011020, end: 20011022
  2. OXYCODONE [Concomitant]
     Route: 065
  3. ATIVAN [Concomitant]
     Route: 065

REACTIONS (6)
  - ANXIETY [None]
  - BLINDNESS UNILATERAL [None]
  - CAROTID ARTERY OCCLUSION [None]
  - CEREBROVASCULAR ACCIDENT [None]
  - COGNITIVE DISORDER [None]
  - DEPRESSION [None]
